FAERS Safety Report 14889987 (Version 2)
Quarter: 2018Q3

REPORT INFORMATION
  Report Type: Spontaneous
  Country: JP (occurrence: JP)
  Receive Date: 20180514
  Receipt Date: 20180830
  Transmission Date: 20181010
  Serious: Yes (Death, Other)
  Sender: FDA-Public Use
  Company Number: JP-ROCHE-2123443

PATIENT
  Age: 58 Year
  Sex: Female
  Weight: 42 kg

DRUGS (20)
  1. AVASTIN [Suspect]
     Active Substance: BEVACIZUMAB
     Route: 041
     Dates: start: 20170801
  2. PACLITAXEL. [Suspect]
     Active Substance: PACLITAXEL
     Route: 041
     Dates: start: 20170522, end: 20170522
  3. DEXART [Concomitant]
     Active Substance: DEXAMETHASONE SODIUM PHOSPHATE
     Dosage: DOSE INTERVAL UNCERTAINTY?12 TIMES
     Route: 041
     Dates: start: 20170403, end: 20180301
  4. DECADRON [Concomitant]
     Active Substance: DEXAMETHASONE
     Dosage: 8MG2/2 12 TIMES
     Route: 048
     Dates: start: 20170404, end: 20180302
  5. AVASTIN [Suspect]
     Active Substance: BEVACIZUMAB
     Indication: OVARIAN CANCER
     Route: 041
     Dates: start: 20170424
  6. PACLITAXEL. [Suspect]
     Active Substance: PACLITAXEL
     Route: 041
     Dates: start: 20170904, end: 20180301
  7. ALOXI [Concomitant]
     Active Substance: PALONOSETRON HYDROCHLORIDE
     Dosage: DOSE INTERVAL UNCERTAINTY?12 TIMES
     Route: 041
     Dates: start: 20170403, end: 20180301
  8. CARBOPLATIN. [Suspect]
     Active Substance: CARBOPLATIN
     Indication: OVARIAN CANCER
     Route: 041
     Dates: start: 20170403, end: 20170424
  9. ZANTAC [Concomitant]
     Active Substance: RANITIDINE HYDROCHLORIDE
     Dosage: DOSE INTERVAL UNCERTAINTY?12 TIMES
     Route: 041
     Dates: start: 20170403, end: 20180301
  10. MAGMITT [Concomitant]
     Active Substance: MAGNESIUM OXIDE
     Route: 048
     Dates: start: 20170407, end: 20180511
  11. TSUMURA DAIKENCHUTO [Concomitant]
     Active Substance: HERBALS
     Route: 048
     Dates: start: 20170315, end: 20180511
  12. AVASTIN [Suspect]
     Active Substance: BEVACIZUMAB
     Route: 041
     Dates: start: 20170619
  13. CARBOPLATIN. [Suspect]
     Active Substance: CARBOPLATIN
     Route: 041
     Dates: start: 20170904, end: 20180301
  14. RESTAMIN [Concomitant]
     Active Substance: DIPHENHYDRAMINE
     Dosage: 12 TIMES
     Route: 048
     Dates: start: 20170403, end: 20180301
  15. AVASTIN [Suspect]
     Active Substance: BEVACIZUMAB
     Route: 041
     Dates: start: 20180118, end: 20180301
  16. PACLITAXEL. [Suspect]
     Active Substance: PACLITAXEL
     Indication: OVARIAN CANCER
     Route: 041
     Dates: start: 20170403, end: 20170424
  17. CARBOPLATIN. [Suspect]
     Active Substance: CARBOPLATIN
     Route: 041
     Dates: start: 20170522, end: 20170522
  18. CARBOPLATIN. [Suspect]
     Active Substance: CARBOPLATIN
     Route: 041
     Dates: start: 20170619, end: 20170801
  19. RILMAZAFONE HYDROCHLORIDE [Concomitant]
     Active Substance: RILMAZAFONE HYDROCHLORIDE
     Dosage: AS REQUIRED
     Route: 048
     Dates: start: 20170320, end: 20180511
  20. PACLITAXEL. [Suspect]
     Active Substance: PACLITAXEL
     Route: 041
     Dates: start: 20170619, end: 20170801

REACTIONS (14)
  - Trousseau^s syndrome [Unknown]
  - Dyslipidaemia [Unknown]
  - Arteriospasm coronary [Unknown]
  - Multiple organ dysfunction syndrome [Fatal]
  - Ileus [Fatal]
  - Platelet count decreased [Unknown]
  - Thrombosis [Unknown]
  - Hepatic cyst [Unknown]
  - Insomnia [Unknown]
  - Ovarian cancer [Fatal]
  - Neutrophil count decreased [Unknown]
  - Deep vein thrombosis [Unknown]
  - Myocardial ischaemia [Fatal]
  - Anaemia [Unknown]

NARRATIVE: CASE EVENT DATE: 20170814
